FAERS Safety Report 13850135 (Version 2)
Quarter: 2017Q3

REPORT INFORMATION
  Report Type: Spontaneous
  Country: JP (occurrence: JP)
  Receive Date: 20170809
  Receipt Date: 20170809
  Transmission Date: 20171127
  Serious: Yes (Death, Hospitalization, Other)
  Sender: FDA-Public Use
  Company Number: JP-BAYER-2016-102710

PATIENT
  Age: 30 Year
  Sex: Female
  Weight: 41 kg

DRUGS (6)
  1. CIPROXAN 200 MG [Suspect]
     Active Substance: CIPROFLOXACIN
     Indication: URINARY TRACT INFECTION
  2. CIPROXAN 200 MG [Suspect]
     Active Substance: CIPROFLOXACIN
     Indication: PYREXIA
     Dosage: DAILY DOSE 400 MG
     Route: 048
     Dates: start: 20160524, end: 20160525
  3. CALONAL [Concomitant]
     Active Substance: ACETAMINOPHEN
     Dosage: 400 MG, PRN
     Route: 048
  4. METOPIRON [Concomitant]
     Active Substance: METYRAPONE
     Dosage: DAILY DOSE 750 MG
     Route: 048
     Dates: end: 20160525
  5. NAUZELIN [Concomitant]
     Active Substance: DOMPERIDONE
     Dosage: DAILY DOSE 30 MG
     Route: 048
     Dates: end: 20160525
  6. PARIET [Concomitant]
     Active Substance: RABEPRAZOLE SODIUM
     Dosage: DAILY DOSE 10 MG
     Route: 048
     Dates: end: 20160525

REACTIONS (6)
  - Shock haemorrhagic [None]
  - Facial paralysis [Recovered/Resolved]
  - Cold sweat [None]
  - Altered state of consciousness [Recovered/Resolved]
  - Headache [Recovered/Resolved]
  - Intra-abdominal haemorrhage [None]

NARRATIVE: CASE EVENT DATE: 20160525
